FAERS Safety Report 20129206 (Version 1)
Quarter: 2021Q4

REPORT INFORMATION
  Report Type: Spontaneous
  Country: US (occurrence: US)
  Receive Date: 20211130
  Receipt Date: 20211130
  Transmission Date: 20220303
  Serious: No
  Sender: FDA-Public Use
  Company Number: US-BAUSCH-BL-2021-038294

PATIENT
  Sex: Female

DRUGS (4)
  1. PROPARACAINE HYDROCHLORIDE [Suspect]
     Active Substance: PROPARACAINE HYDROCHLORIDE
     Indication: Mydriasis
     Route: 047
     Dates: start: 2021
  2. PROPARACAINE HYDROCHLORIDE [Suspect]
     Active Substance: PROPARACAINE HYDROCHLORIDE
     Indication: Product use in unapproved indication
  3. TROPICAMIDE [Suspect]
     Active Substance: TROPICAMIDE
     Indication: Mydriasis
     Route: 047
     Dates: start: 2021
  4. PHENYLEPHRINE HYDROCHLORIDE [Suspect]
     Active Substance: PHENYLEPHRINE HYDROCHLORIDE
     Indication: Product used for unknown indication
     Route: 047
     Dates: start: 2021

REACTIONS (5)
  - Eczema [Unknown]
  - Disease recurrence [Unknown]
  - Hypersensitivity [Unknown]
  - Product quality issue [Unknown]
  - Product use in unapproved indication [Unknown]

NARRATIVE: CASE EVENT DATE: 20210101
